FAERS Safety Report 8340863-0 (Version None)
Quarter: 2012Q1

REPORT INFORMATION
  Report Type: 
  Country: None (occurrence: None)
  Receive Date: 20120329
  Receipt Date: 20090316
  Transmission Date: 20120608
  Serious: Yes (Hospitalization)
  Sender: FDA-Public Use
  Company Number: PHEH2009US02656

PATIENT
  Sex: Female

DRUGS (1)
  1. EXELON [Suspect]
     Dosage: SIX TO EIGHT PATCHES APPLIED, TRANSDERMAL
     Route: 062

REACTIONS (2)
  - MEDICATION ERROR [None]
  - ABDOMINAL PAIN [None]
